FAERS Safety Report 10874527 (Version 1)
Quarter: 2015Q1

REPORT INFORMATION
  Report Type: Spontaneous
  Country: US (occurrence: US)
  Receive Date: 20150227
  Receipt Date: 20150227
  Transmission Date: 20150721
  Serious: No
  Sender: FDA-Public Use
  Company Number: US-GLAXOSMITHKLINE-US2015GSK006376

PATIENT
  Age: 79 Year
  Sex: Male

DRUGS (8)
  1. ADVAIR DISKUS [Suspect]
     Active Substance: FLUTICASONE PROPIONATE\SALMETEROL XINAFOATE
     Indication: CHRONIC OBSTRUCTIVE PULMONARY DISEASE
     Dosage: 1 PUFF(S), BID
     Route: 048
     Dates: start: 201401
  2. PROAIR HFA [Concomitant]
     Active Substance: ALBUTEROL SULFATE
  3. ELIQUIS [Concomitant]
     Active Substance: APIXABAN
  4. ROPINIROLE TABLET [Concomitant]
     Active Substance: ROPINIROLE
  5. TAMSULOSIN [Concomitant]
     Active Substance: TAMSULOSIN
  6. METOPROLOL [Concomitant]
     Active Substance: METOPROLOL
  7. ASPIRIN. [Concomitant]
     Active Substance: ASPIRIN
  8. LEVOTHYROXINE [Concomitant]
     Active Substance: LEVOTHYROXINE

REACTIONS (1)
  - Drug ineffective [Unknown]

NARRATIVE: CASE EVENT DATE: 201401
